FAERS Safety Report 9898586 (Version 2)
Quarter: 2014Q1

REPORT INFORMATION
  Report Type: Spontaneous
  Country: US (occurrence: US)
  Receive Date: 20140214
  Receipt Date: 20140219
  Transmission Date: 20141002
  Serious: Yes (Hospitalization, Other)
  Sender: FDA-Public Use
  Company Number: US-BAXTER-2014BAX007063

PATIENT
  Age: 82 Year
  Sex: Male

DRUGS (4)
  1. DIANEAL LOW CALCIUM [Suspect]
     Indication: RENAL FAILURE
     Route: 033
     Dates: start: 201310, end: 201401
  2. DIANEAL LOW CALCIUM [Suspect]
     Route: 033
     Dates: start: 20140210
  3. DIANEAL LOW CALCIUM [Suspect]
     Indication: RENAL FAILURE
     Route: 033
     Dates: start: 201310, end: 201401
  4. DIANEAL LOW CALCIUM [Suspect]
     Route: 033
     Dates: start: 20140210

REACTIONS (2)
  - Large intestinal obstruction [Recovered/Resolved]
  - Inguinal hernia [Recovered/Resolved]
